FAERS Safety Report 4879505-5 (Version None)
Quarter: 2006Q1

REPORT INFORMATION
  Report Type: 
  Country: None (occurrence: None)
  Receive Date: 20060110
  Receipt Date: 20050405
  Transmission Date: 20060701
  Serious: Yes (Other)
  Sender: FDA-Public Use
  Company Number: HQWYE954911APR05

PATIENT
  Sex: Male

DRUGS (4)
  1. MYAMBUTOL [Suspect]
     Indication: TUBERCULOSIS
     Dosage: 800 MG,DAILY,064
  2. ISONIAZID [Suspect]
     Indication: TUBERCULOSIS
     Dosage: 300 MG,DAILY,064
  3. RIFAMPICIN [Suspect]
     Indication: TUBERCULOSIS
     Dosage: 450 MG/DAY/064
  4. PYRAZINAMIDE [Suspect]
     Indication: CUTANEOUS TUBERCULOSIS
     Dosage: 1500 MG/DAY/064

REACTIONS (1)
  - DRUG INEFFECTIVE [None]
